FAERS Safety Report 5584496-8 (Version None)
Quarter: 2008Q1

REPORT INFORMATION
  Report Type: 
  Country: None (occurrence: None)
  Receive Date: 20080103
  Receipt Date: 20071219
  Transmission Date: 20080703
  Serious: Yes (Hospitalization)
  Sender: FDA-Public Use
  Company Number: DSJ-2007-10755

PATIENT
  Age: 79 Year
  Sex: Male

DRUGS (6)
  1. OLMESARTAN MEDOXOMIL [Suspect]
     Indication: HYPERTENSION
     Dosage: 40 MG (40 MG, 1 IN 1 D), PER ORAL
     Route: 048
     Dates: start: 20070701, end: 20070918
  2. PERINDOPRIL ERBUMINE [Suspect]
     Indication: HYPERTENSION
     Dosage: 4 MG (4 MG, 1 IN 1 D) PER ORAL
     Route: 048
     Dates: start: 19990101, end: 20070701
  3. DECAPEPTYL                  (TRIPTORELIN ACETATE) [Concomitant]
  4. FENOFIBRATE [Concomitant]
  5. ASPIRIN [Concomitant]
  6. LEXOMIL [Concomitant]

REACTIONS (3)
  - ANGIOEDEMA [None]
  - DYSPHAGIA [None]
  - DYSPNOEA [None]
